FAERS Safety Report 12763381 (Version 4)
Quarter: 2017Q2

REPORT INFORMATION
  Report Type: Spontaneous
  Country: US (occurrence: US)
  Receive Date: 20160920
  Receipt Date: 20170410
  Transmission Date: 20170830
  Serious: Yes (Other)
  Sender: FDA-Public Use
  Company Number: US-JNJFOC-20160916564

PATIENT
  Age: 43 Year
  Sex: Female
  Weight: 81.65 kg

DRUGS (2)
  1. BOTOX [Concomitant]
     Active Substance: ONABOTULINUMTOXINA
     Route: 065
     Dates: start: 201507
  2. AXERT [Suspect]
     Active Substance: ALMOTRIPTAN MALATE
     Indication: MIGRAINE
     Route: 048
     Dates: start: 2011

REACTIONS (9)
  - Product availability issue [Unknown]
  - Drug hypersensitivity [Recovered/Resolved]
  - Asthenia [Unknown]
  - Headache [Unknown]
  - Arthritis [Unknown]
  - Hypersensitivity [Unknown]
  - Botulism [Recovered/Resolved]
  - Drug dose omission [Unknown]
  - Impaired work ability [Unknown]

NARRATIVE: CASE EVENT DATE: 201507
